FAERS Safety Report 7198614-1 (Version None)
Quarter: 2010Q4

REPORT INFORMATION
  Report Type: 
  Country: None (occurrence: None)
  Receive Date: 20101227
  Receipt Date: 20100608
  Transmission Date: 20110411
  Serious: No
  Sender: FDA-Public Use
  Company Number: US-ABBOTT-09P-163-0601840-00

PATIENT
  Sex: Male
  Weight: 93.07 kg

DRUGS (3)
  1. LUPRON DEPOT [Suspect]
     Indication: PROSTATE CANCER
     Route: 050
     Dates: start: 20060101, end: 20100208
  2. LUPRON DEPOT [Suspect]
     Indication: PROSTATIC SPECIFIC ANTIGEN INCREASED
     Route: 050
     Dates: start: 20100208
  3. LUPRON DEPOT [Suspect]
     Indication: HORMONE REPLACEMENT THERAPY

REACTIONS (13)
  - ARTHRALGIA [None]
  - ASTHENIA [None]
  - BLOOD CHOLESTEROL INCREASED [None]
  - ERECTILE DYSFUNCTION [None]
  - FATIGUE [None]
  - GAIT DISTURBANCE [None]
  - HEADACHE [None]
  - HOT FLUSH [None]
  - LIBIDO DECREASED [None]
  - NEUROPATHY PERIPHERAL [None]
  - PAIN [None]
  - PROSTATIC SPECIFIC ANTIGEN INCREASED [None]
  - TESTICULAR ATROPHY [None]
